FAERS Safety Report 14640104 (Version 2)
Quarter: 2018Q2

REPORT INFORMATION
  Report Type: Report from Study
  Country: US (occurrence: US)
  Receive Date: 20180315
  Receipt Date: 20180629
  Transmission Date: 20180711
  Serious: Yes (Other)
  Sender: FDA-Public Use
  Company Number: US-ROCHE-2085845

PATIENT
  Sex: Female
  Weight: 49.94 kg

DRUGS (4)
  1. METHYLPREDNISOLONE. [Suspect]
     Active Substance: METHYLPREDNISOLONE
     Dosage: EVERY 10 DAYS TO 2 WEEKS
     Route: 048
  2. OCREVUS [Suspect]
     Active Substance: OCRELIZUMAB
     Indication: PRIMARY PROGRESSIVE MULTIPLE SCLEROSIS
     Dosage: FULL DOSE ;ONGOING: NO
     Route: 042
     Dates: start: 201712
  3. OCREVUS [Suspect]
     Active Substance: OCRELIZUMAB
     Indication: RELAPSING MULTIPLE SCLEROSIS
     Dosage: HALF DOSE ;ONGOING: NO
     Route: 042
     Dates: start: 20170622
  4. METHYLPREDNISOLONE. [Suspect]
     Active Substance: METHYLPREDNISOLONE
     Indication: ASTHENIA
     Dosage: EVERY 6 WEEKS TO 2 MONTHS
     Route: 048

REACTIONS (3)
  - Muscular weakness [Unknown]
  - Asthenia [Unknown]
  - Multiple sclerosis [Unknown]
